FAERS Safety Report 19913475 (Version 1)
Quarter: 2021Q4

REPORT INFORMATION
  Report Type: Spontaneous
  Country: US (occurrence: US)
  Receive Date: 20211004
  Receipt Date: 20211004
  Transmission Date: 20220304
  Serious: Yes (Other)
  Sender: FDA-Public Use
  Company Number: US-PFIZER INC-202101259147

PATIENT
  Age: 79 Year
  Sex: Male

DRUGS (1)
  1. VYNDAMAX [Suspect]
     Active Substance: TAFAMIDIS
     Dosage: 61 MG

REACTIONS (7)
  - Cardiac failure congestive [Unknown]
  - Amyloidosis [Unknown]
  - Chronic left ventricular failure [Unknown]
  - Cardiovascular disorder [Unknown]
  - Palpitations [Unknown]
  - Hypotension [Unknown]
  - Amyloidosis senile [Unknown]
